FAERS Safety Report 5748175-6 (Version None)
Quarter: 2008Q2

REPORT INFORMATION
  Report Type: 
  Country: None (occurrence: None)
  Receive Date: 20080523
  Receipt Date: 20080430
  Transmission Date: 20081010
  Serious: No
  Sender: FDA-Public Use
  Company Number: US-BOEHRINGER INGELHEIM GMBH, GERMANY-2008-BP-06806BP

PATIENT
  Sex: Female

DRUGS (6)
  1. SPIRIVA [Suspect]
     Indication: CHRONIC OBSTRUCTIVE PULMONARY DISEASE
     Route: 055
     Dates: start: 20080101
  2. VITAMIN D [Concomitant]
  3. CALCIUM [Concomitant]
  4. DILTIAZEM [Concomitant]
     Indication: CARDIAC DISORDER
  5. AZTELIN [Concomitant]
     Indication: HYPERSENSITIVITY
  6. PROVENTIL [Concomitant]

REACTIONS (1)
  - DYSPNOEA [None]
